FAERS Safety Report 6931593-8 (Version None)
Quarter: 2010Q3

REPORT INFORMATION
  Report Type: 
  Country: None (occurrence: None)
  Receive Date: 20100816
  Receipt Date: 20100803
  Transmission Date: 20110219
  Serious: Yes (Other)
  Sender: FDA-Public Use
  Company Number: US_TT_10_00003

PATIENT

DRUGS (1)
  1. DEXRAZOXANE [Suspect]

REACTIONS (1)
  - NEOPLASM MALIGNANT [None]
